FAERS Safety Report 18645689 (Version 2)
Quarter: 2021Q1

REPORT INFORMATION
  Report Type: Report from Study
  Country: None (occurrence: US)
  Receive Date: 20201222
  Receipt Date: 20210127
  Transmission Date: 20210419
  Serious: Yes (Other)
  Sender: FDA-Public Use
  Company Number: US-ABBVIE-20K-163-3697681-00

PATIENT
  Age: 43 Year
  Sex: Female

DRUGS (2)
  1. HUMIRA [Suspect]
     Active Substance: ADALIMUMAB
     Indication: CROHN^S DISEASE
     Dosage: CITRATE FREE
     Route: 058
  2. HUMIRA [Suspect]
     Active Substance: ADALIMUMAB
     Indication: RHEUMATOID ARTHRITIS
     Dosage: CITRATE FREE
     Route: 058

REACTIONS (9)
  - Abdominal discomfort [Unknown]
  - Large intestinal stenosis [Unknown]
  - Injection site pain [Recovered/Resolved]
  - Post procedural inflammation [Not Recovered/Not Resolved]
  - Injection site bruising [Recovered/Resolved]
  - Adverse food reaction [Unknown]
  - Diarrhoea [Unknown]
  - Polyp [Unknown]
  - Food intolerance [Unknown]

NARRATIVE: CASE EVENT DATE: 202011
